FAERS Safety Report 15482343 (Version 3)
Quarter: 2018Q4

REPORT INFORMATION
  Report Type: Spontaneous
  Country: IT (occurrence: IT)
  Receive Date: 20181010
  Receipt Date: 20181019
  Transmission Date: 20190205
  Serious: Yes (Life-Threatening, Hospitalization, Other)
  Sender: FDA-Public Use
  Company Number: PHHY2018IT120026

PATIENT
  Age: 20 Year
  Sex: Male

DRUGS (9)
  1. WARFARIN [Suspect]
     Active Substance: WARFARIN
     Indication: ATRIAL FIBRILLATION
     Route: 065
  2. DEFERIPRONE [Suspect]
     Active Substance: DEFERIPRONE
     Indication: CHELATION THERAPY
  3. DEFEROXAMINE [Suspect]
     Active Substance: DEFEROXAMINE\DEFEROXAMINE MESYLATE
     Indication: IRON OVERLOAD
     Route: 065
  4. DEFEROXAMINE [Suspect]
     Active Substance: DEFEROXAMINE\DEFEROXAMINE MESYLATE
     Indication: CHELATION THERAPY
     Dosage: UNK (24-HOUR/PER/DAY)
     Route: 042
  5. CARVEDILOL. [Suspect]
     Active Substance: CARVEDILOL
     Indication: CEREBROVASCULAR ACCIDENT
  6. DEFERIPRONE [Suspect]
     Active Substance: DEFERIPRONE
     Indication: IRON OVERLOAD
  7. DEFERIPRONE [Suspect]
     Active Substance: DEFERIPRONE
     Indication: SALVAGE THERAPY
     Route: 048
  8. DEFERIPRONE [Suspect]
     Active Substance: DEFERIPRONE
     Indication: CARDIAC FAILURE
     Dosage: 75 MG/KG, QD
     Route: 048
  9. CARVEDILOL. [Suspect]
     Active Substance: CARVEDILOL
     Indication: ATRIAL FIBRILLATION
     Dosage: UNINTERRUPTED IV 24-HOUR/PER/DAY
     Route: 042

REACTIONS (20)
  - Dehydration [Recovering/Resolving]
  - Hepatomegaly [Recovering/Resolving]
  - Coagulopathy [Recovering/Resolving]
  - Renal tubular disorder [Recovered/Resolved]
  - Influenza like illness [Recovering/Resolving]
  - Pleural effusion [Recovering/Resolving]
  - Beta 2 microglobulin urine increased [Recovered/Resolved]
  - Hypokalaemia [Recovered/Resolved]
  - Jaundice [Recovering/Resolving]
  - Proteinuria [Recovered/Resolved]
  - Depressed level of consciousness [Recovered/Resolved]
  - Model for end stage liver disease score abnormal [Recovering/Resolving]
  - Breath sounds abnormal [Recovering/Resolving]
  - Hypophosphataemia [Recovered/Resolved]
  - Glycosuria [Recovered/Resolved]
  - Drug-induced liver injury [Recovered/Resolved]
  - Asthenia [Recovering/Resolving]
  - Condition aggravated [Recovering/Resolving]
  - Electrolyte imbalance [Recovered/Resolved]
  - Gamma-glutamyltransferase increased [Not Recovered/Not Resolved]
